FAERS Safety Report 10515743 (Version 2)
Quarter: 2014Q4

REPORT INFORMATION
  Report Type: Spontaneous
  Country: US (occurrence: US)
  Receive Date: 20141014
  Receipt Date: 20141023
  Transmission Date: 20150528
  Serious: Yes (Other)
  Sender: FDA-Public Use
  Company Number: US-PFIZER INC-2014278526

PATIENT
  Age: 41 Year
  Sex: Male
  Weight: 95 kg

DRUGS (1)
  1. VIAGRA [Suspect]
     Active Substance: SILDENAFIL CITRATE
     Indication: ERECTILE DYSFUNCTION
     Dosage: 75 MG, NIGHTLY
     Route: 048

REACTIONS (6)
  - Intentional product misuse [Unknown]
  - Expired product administered [Unknown]
  - Palpitations [Unknown]
  - Malaise [Unknown]
  - Incest [Unknown]
  - Drug effect prolonged [Unknown]

NARRATIVE: CASE EVENT DATE: 20141003
